FAERS Safety Report 10178357 (Version 1)
Quarter: 2014Q2

REPORT INFORMATION
  Report Type: Spontaneous
  Country: US (occurrence: None)
  Receive Date: 20140516
  Receipt Date: 20140516
  Transmission Date: 20141212
  Serious: No
  Sender: FDA-Public Use
  Company Number: None

PATIENT
  Age: 37 Year
  Sex: Female
  Weight: 104 kg

DRUGS (1)
  1. METFORMIN [Suspect]
     Indication: POLYCYSTIC OVARIES
     Dosage: 1PILL?THREE TIME DAILY?TAKEN BY MOUTH
     Route: 048
     Dates: start: 20130101, end: 20140514

REACTIONS (1)
  - Vulvovaginal mycotic infection [None]
